FAERS Safety Report 9175686 (Version 1)
Quarter: 2013Q1

REPORT INFORMATION
  Report Type: Spontaneous
  Country: AR (occurrence: AR)
  Receive Date: 20130320
  Receipt Date: 20130320
  Transmission Date: 20140127
  Serious: Yes (Other)
  Sender: FDA-Public Use
  Company Number: AR-PFIZER INC-2013087333

PATIENT
  Sex: Male

DRUGS (1)
  1. GENOTROPIN [Suspect]
     Dosage: 1 MG - 1.4 MG, UNK

REACTIONS (1)
  - Craniopharyngioma [Not Recovered/Not Resolved]
